FAERS Safety Report 6865375-2 (Version None)
Quarter: 2010Q3

REPORT INFORMATION
  Report Type: 
  Country: None (occurrence: None)
  Receive Date: 20100721
  Receipt Date: 20080520
  Transmission Date: 20110219
  Serious: Yes (Death)
  Sender: FDA-Public Use
  Company Number: US-PFIZER INC-2008036890

PATIENT
  Sex: Male
  Weight: 85.3 kg

DRUGS (15)
  1. CHANTIX [Suspect]
     Indication: NICOTINE DEPENDENCE
     Dates: start: 20080404, end: 20080407
  2. CHANTIX [Suspect]
     Indication: CHRONIC OBSTRUCTIVE PULMONARY DISEASE
  3. CHANTIX [Suspect]
     Indication: EX-TOBACCO USER
  4. CORTICOSTEROIDS [Concomitant]
     Indication: BRONCHITIS
  5. LEVAQUIN [Concomitant]
  6. PREDNISONE [Concomitant]
  7. STELAZINE [Concomitant]
  8. COGENTIN [Concomitant]
  9. ATARAX [Concomitant]
  10. VALSARTAN [Concomitant]
  11. COREG [Concomitant]
  12. DIGOXIN [Concomitant]
  13. SPIRONOLACTONE [Concomitant]
  14. LASIX [Concomitant]
  15. LIPITOR [Concomitant]

REACTIONS (2)
  - ANXIETY [None]
  - COMPLETED SUICIDE [None]
